FAERS Safety Report 6055673-7 (Version None)
Quarter: 2009Q1

REPORT INFORMATION
  Report Type: 
  Country: None (occurrence: None)
  Receive Date: 20090123
  Receipt Date: 20090109
  Transmission Date: 20090719
  Serious: Yes (Death)
  Sender: FDA-Public Use
  Company Number: 141355

PATIENT
  Sex: Male

DRUGS (6)
  1. BLEOMYCIN SULFATE [Suspect]
     Indication: BURKITT'S LYMPHOMA
  2. METHOTREXATE [Suspect]
     Indication: BURKITT'S LYMPHOMA
  3. VINCRISTINE SULFATE [Suspect]
     Indication: BURKITT'S LYMPHOMA
  4. CYCLOPHOSPHAMIDE [Suspect]
     Indication: BURKITT'S LYMPHOMA
  5. DOXORUBICIN HCL [Suspect]
     Indication: BURKITT'S LYMPHOMA
  6. (ANTIVIRALS NOS) [Suspect]
     Indication: ACQUIRED IMMUNODEFICIENCY SYNDROME

REACTIONS (2)
  - ACUTE MYELOMONOCYTIC LEUKAEMIA [None]
  - MYELODYSPLASTIC SYNDROME [None]
